FAERS Safety Report 6707643-0 (Version None)
Quarter: 2010Q2

REPORT INFORMATION
  Report Type: 
  Country: None (occurrence: None)
  Receive Date: 20100503
  Receipt Date: 20090808
  Transmission Date: 20101027
  Serious: No
  Sender: FDA-Public Use
  Company Number: US-ASTRAZENECA-2009SE07520

PATIENT
  Age: 10365 Day
  Sex: Male
  Weight: 74.8 kg

DRUGS (2)
  1. NEXIUM [Suspect]
     Indication: GASTROOESOPHAGEAL REFLUX DISEASE
     Route: 048
  2. ADVIL [Concomitant]
     Indication: BACK PAIN

REACTIONS (1)
  - HAEMATOCHEZIA [None]
